FAERS Safety Report 20010229 (Version 1)
Quarter: 2021Q4

REPORT INFORMATION
  Report Type: Spontaneous
  Country: US (occurrence: US)
  Receive Date: 20211028
  Receipt Date: 20211028
  Transmission Date: 20220304
  Serious: Yes (Death)
  Sender: FDA-Public Use
  Company Number: None

PATIENT
  Age: 83 Year
  Sex: Male

DRUGS (5)
  1. THALOMID [Suspect]
     Active Substance: THALIDOMIDE
     Indication: Primary myelofibrosis
     Route: 048
     Dates: start: 20200601, end: 20210927
  2. THALOMID [Suspect]
     Active Substance: THALIDOMIDE
     Indication: Myeloid metaplasia
  3. METOLAZONE [Concomitant]
     Active Substance: METOLAZONE
  4. CITALOPRAM [Concomitant]
     Active Substance: CITALOPRAM HYDROBROMIDE
  5. TORSEMIDE [Concomitant]
     Active Substance: TORSEMIDE

REACTIONS (4)
  - Anaemia [None]
  - Transfusion [None]
  - Thrombocytopenia [None]
  - Condition aggravated [None]

NARRATIVE: CASE EVENT DATE: 20210927
